FAERS Safety Report 8818054 (Version 1)
Quarter: 2012Q4

REPORT INFORMATION
  Report Type: 
  Country: US (occurrence: US)
  Receive Date: 20121001
  Receipt Date: 20121001
  Transmission Date: 20130627
  Serious: Yes (Other)
  Sender: FDA-Public Use
  Company Number: US-ASTRAZENECA-2012SE73895

PATIENT
  Age: 58 Year
  Sex: Female

DRUGS (4)
  1. SYMBICORT [Suspect]
     Indication: ASTHMA
     Dosage: 160MG 2 PUFFS BID
     Route: 055
  2. XEOPENEX [Concomitant]
     Indication: ASTHMA
     Route: 055
  3. OMNARIS [Concomitant]
     Dosage: BID
  4. PROTENASE [Concomitant]
     Dosage: DAILY

REACTIONS (1)
  - Retinal vasculitis [Unknown]
